FAERS Safety Report 6855884-4 (Version None)
Quarter: 2010Q3

REPORT INFORMATION
  Report Type: 
  Country: None (occurrence: None)
  Receive Date: 20100719
  Receipt Date: 20100719
  Transmission Date: 20110219
  Serious: No
  Sender: FDA-Public Use
  Company Number: None

PATIENT
  Age: 7 Year
  Sex: Female
  Weight: 21.7727 kg

DRUGS (2)
  1. CHILDREN'S BENADRYL ALLERGY [Suspect]
     Indication: NASAL CONGESTION
     Dosage: 1 TSP WHEN STUFFY NOSE PO ; 1 TSP SWELLING FROM STIN PO
     Route: 048
     Dates: start: 20100101, end: 20100616
  2. CHILDREN'S BENADRYL ALLERGY [Suspect]
     Indication: SWELLING
     Dosage: 1 TSP WHEN STUFFY NOSE PO ; 1 TSP SWELLING FROM STIN PO
     Route: 048
     Dates: start: 20100101, end: 20100616

REACTIONS (1)
  - PRODUCT CONTAMINATION PHYSICAL [None]
